FAERS Safety Report 9016681 (Version 1)
Quarter: 2013Q1

REPORT INFORMATION
  Report Type: Spontaneous
  Country: US (occurrence: US)
  Receive Date: 20130116
  Receipt Date: 20130116
  Transmission Date: 20140127
  Serious: Yes (Hospitalization, Other)
  Sender: FDA-Public Use
  Company Number: US-ASTRAZENECA-2013SE01224

PATIENT
  Sex: Female

DRUGS (2)
  1. CANDESARTAN/HYDROCHLOROTHIAZIDE [Suspect]
     Indication: HYPERTENSION
     Dosage: 32/12.5MG DAILY
     Route: 048
  2. ATACAND HCT [Concomitant]

REACTIONS (2)
  - Thyroid cancer [Unknown]
  - Blood triglycerides increased [Unknown]
